FAERS Safety Report 7836587-6 (Version None)
Quarter: 2011Q4

REPORT INFORMATION
  Report Type: 
  Country: None (occurrence: None)
  Receive Date: 20111024
  Receipt Date: 20110628
  Transmission Date: 20120403
  Serious: No
  Sender: FDA-Public Use
  Company Number: US-ABBOTT-11P-163-0835058-00

PATIENT
  Sex: Female
  Weight: 51.302 kg

DRUGS (5)
  1. ASPIRIN [Suspect]
     Indication: PROPHYLAXIS
     Route: 048
  2. IRON [Concomitant]
     Indication: ANAEMIA
  3. LUPRON DEPOT [Suspect]
     Indication: UTERINE LEIOMYOMA
     Route: 030
     Dates: start: 20110620
  4. LUPRON DEPOT [Suspect]
     Indication: VAGINAL HAEMORRHAGE
  5. IRON [Concomitant]
     Indication: MINERAL SUPPLEMENTATION
     Route: 048
     Dates: start: 20110301

REACTIONS (1)
  - INCREASED TENDENCY TO BRUISE [None]
